FAERS Safety Report 7590621-X (Version None)
Quarter: 2011Q3

REPORT INFORMATION
  Report Type: 
  Country: None (occurrence: None)
  Receive Date: 20110705
  Receipt Date: 20110705
  Transmission Date: 20111222
  Serious: Yes (Hospitalization)
  Sender: FDA-Public Use
  Company Number: UY-ROXANE LABORATORIES, INC.-2011-DE-00558GD

PATIENT
  Age: 35 Year
  Sex: Female

DRUGS (1)
  1. PREDNISONE [Suspect]
     Indication: SYSTEMIC LUPUS ERYTHEMATOSUS
     Dosage: 10 MG

REACTIONS (8)
  - LYMPHOPENIA [None]
  - SINUSITIS [None]
  - HISTOPLASMOSIS DISSEMINATED [None]
  - NASAL SEPTUM DISORDER [None]
  - APHONIA [None]
  - CHRONIC PULMONARY HISTOPLASMOSIS [None]
  - OROPHARYNGEAL PAIN [None]
  - DYSPHAGIA [None]
